FAERS Safety Report 18540504 (Version 1)
Quarter: 2020Q4

REPORT INFORMATION
  Report Type: Spontaneous
  Country: FR (occurrence: FR)
  Receive Date: 20201124
  Receipt Date: 20201124
  Transmission Date: 20210114
  Serious: Yes (Death, Life-Threatening, Other)
  Sender: FDA-Public Use
  Company Number: FR-AMGEN-FRASP2020187565

PATIENT

DRUGS (1)
  1. VECTIBIX [Suspect]
     Active Substance: PANITUMUMAB
     Indication: COLORECTAL CANCER METASTATIC
     Dosage: 6 MILLIGRAM/KILOGRAM, Q2WK
     Route: 065

REACTIONS (11)
  - Sepsis [Unknown]
  - Necrosis [Unknown]
  - Therapy partial responder [Unknown]
  - Skin toxicity [Unknown]
  - Purpura [Unknown]
  - Haematotoxicity [Unknown]
  - Venous thrombosis [Unknown]
  - Hypersensitivity [Unknown]
  - Neuropathic arthropathy [Unknown]
  - Death [Fatal]
  - Colorectal cancer metastatic [Unknown]
